FAERS Safety Report 10005995 (Version 2)
Quarter: 2014Q1

REPORT INFORMATION
  Report Type: Spontaneous
  Country: US (occurrence: US)
  Receive Date: 20140313
  Receipt Date: 20140313
  Transmission Date: 20141002
  Serious: Yes (Hospitalization)
  Sender: FDA-Public Use
  Company Number: US-BEH-2011028045

PATIENT
  Age: 44 Year
  Sex: Female
  Weight: 67 kg

DRUGS (20)
  1. HIZENTRA [Suspect]
     Indication: IMMUNODEFICIENCY COMMON VARIABLE
     Dosage: INFUSED 35ML OVER 1 HOUR
     Route: 058
     Dates: start: 20101007
  2. HIZENTRA [Suspect]
     Dosage: ??-MAR-2011
  3. HIZENTRA [Suspect]
     Dosage: ??-MAR-2011
  4. HIZENTRA [Suspect]
     Dosage: ??-MAR-2011
  5. ASTELIN [Concomitant]
  6. METFORMIN [Concomitant]
  7. FLONASE [Concomitant]
  8. FERROUS [Concomitant]
  9. GASTROCROM [Concomitant]
  10. DOCUSATE [Concomitant]
  11. CIPRO [Concomitant]
  12. ROWASA [Concomitant]
  13. PREDNISONE [Concomitant]
  14. AZATHIOPRINE [Concomitant]
  15. LIALDA [Concomitant]
  16. FAMOTIDINE [Concomitant]
  17. SELENIUM [Concomitant]
  18. FEXOFENADINE [Concomitant]
  19. ITRACONAZOLE [Concomitant]
  20. PREDNISONE [Concomitant]

REACTIONS (7)
  - Gastroenteritis Escherichia coli [Unknown]
  - Nausea [Unknown]
  - Vomiting [Unknown]
  - Diarrhoea [Unknown]
  - Bronchitis [Unknown]
  - Dyspnoea [Unknown]
  - Wheezing [Unknown]
